FAERS Safety Report 20020350 (Version 1)
Quarter: 2021Q4

REPORT INFORMATION
  Report Type: Spontaneous
  Country: US (occurrence: US)
  Receive Date: 20211101
  Receipt Date: 20211101
  Transmission Date: 20220303
  Serious: Yes (Death, Life-Threatening, Other)
  Sender: FDA-Public Use
  Company Number: US-AMGEN-USASP2021167421

PATIENT

DRUGS (6)
  1. CARFILZOMIB [Suspect]
     Active Substance: CARFILZOMIB
     Indication: Peripheral T-cell lymphoma unspecified refractory
     Dosage: Q2WK, DAYS 1, 2, 8, 9, 15, 16
     Route: 065
  2. CARFILZOMIB [Suspect]
     Active Substance: CARFILZOMIB
     Indication: Angioimmunoblastic T-cell lymphoma
     Dosage: Q2WK, DAYS 1, 2, 8, 9, 15, 16
     Route: 065
  3. CARFILZOMIB [Suspect]
     Active Substance: CARFILZOMIB
     Dosage: Q2WK, DAYS 1, 2, 8, 9, 15, 16
     Route: 065
  4. CARFILZOMIB [Suspect]
     Active Substance: CARFILZOMIB
     Dosage: Q2WK, DAYS 1, 2, 8, 9, 15, 16
     Route: 065
  5. DEXAMETHASONE [Suspect]
     Active Substance: DEXAMETHASONE
     Indication: Peripheral T-cell lymphoma unspecified refractory
     Dosage: 4 MILLIGRAM
     Route: 065
  6. DEXAMETHASONE [Suspect]
     Active Substance: DEXAMETHASONE
     Indication: Angioimmunoblastic T-cell lymphoma

REACTIONS (39)
  - Death [Fatal]
  - Sepsis [Unknown]
  - Abdominal distension [Unknown]
  - Capillary leak syndrome [Unknown]
  - Pneumonia [Unknown]
  - Pleural effusion [Unknown]
  - Testicular disorder [Unknown]
  - Hypokalaemia [Unknown]
  - Syncope [Unknown]
  - Vomiting [Unknown]
  - Lymphocyte count decreased [Unknown]
  - T-cell lymphoma refractory [Unknown]
  - Anaemia [Unknown]
  - Thrombocytopenia [Unknown]
  - Leukopenia [Unknown]
  - Fatigue [Unknown]
  - Hypocalcaemia [Unknown]
  - Dyspnoea [Unknown]
  - Oedema peripheral [Unknown]
  - Therapy partial responder [Unknown]
  - Vision blurred [Unknown]
  - Memory impairment [Unknown]
  - Stomatitis [Unknown]
  - Aspartate aminotransferase increased [Unknown]
  - Oral dysaesthesia [Unknown]
  - Diarrhoea [Unknown]
  - Constipation [Unknown]
  - Blood alkaline phosphatase increased [Unknown]
  - Headache [Unknown]
  - Myalgia [Unknown]
  - Dizziness [Unknown]
  - Pain [Unknown]
  - Blood bilirubin increased [Unknown]
  - Hypoalbuminaemia [Unknown]
  - Hyponatraemia [Unknown]
  - Pyrexia [Unknown]
  - Nausea [Unknown]
  - Hyperglycaemia [Unknown]
  - Neutrophil count decreased [Unknown]
